FAERS Safety Report 13268519 (Version 1)
Quarter: 2017Q1

REPORT INFORMATION
  Report Type: Spontaneous
  Country: US (occurrence: US)
  Receive Date: 20170224
  Receipt Date: 20170224
  Transmission Date: 20170428
  Serious: No
  Sender: FDA-Public Use
  Company Number: US-BAYER-2017-037038

PATIENT
  Age: 37 Year
  Sex: Female

DRUGS (1)
  1. ALEVE [Suspect]
     Active Substance: NAPROXEN SODIUM
     Indication: PAIN
     Dosage: 2 DF, TID (2 TABLETS EVERY 8 HOURS)
     Route: 048

REACTIONS (5)
  - Abdominal pain upper [Recovered/Resolved]
  - Overdose [Unknown]
  - Drug hypersensitivity [Unknown]
  - Abdominal discomfort [Recovered/Resolved]
  - Abdominal pain [Recovered/Resolved]
